FAERS Safety Report 8814818 (Version 1)
Quarter: 2012Q4

REPORT INFORMATION
  Report Type: 
  Country: US (occurrence: US)
  Receive Date: 20120928
  Receipt Date: 20120928
  Transmission Date: 20130627
  Serious: Yes (Hospitalization)
  Sender: FDA-Public Use
  Company Number: US-ROCHE-1123615

PATIENT
  Age: 49 Year
  Sex: Female

DRUGS (13)
  1. AVASTIN [Suspect]
     Indication: BREAST CANCER FEMALE
     Route: 065
  2. AVASTIN [Suspect]
     Route: 065
     Dates: start: 20051202
  3. AVASTIN [Suspect]
     Route: 065
     Dates: start: 200601
  4. HERCEPTIN [Suspect]
     Indication: PRODUCT USED FOR UNKNOWN INDICATION
     Route: 065
     Dates: start: 200508
  5. ADRIAMYCIN [Concomitant]
  6. CYTOXAN [Concomitant]
  7. TAXOTERE [Concomitant]
     Route: 065
  8. GEMZAR [Concomitant]
     Route: 065
     Dates: start: 200508
  9. ABRAXANE [Concomitant]
     Route: 065
     Dates: end: 20051111
  10. ABRAXANE [Concomitant]
     Route: 065
     Dates: start: 20051202
  11. ABRAXANE [Concomitant]
     Route: 065
     Dates: start: 200601
  12. NEUPOGEN [Concomitant]
  13. NEULASTA [Concomitant]

REACTIONS (12)
  - Metastases to spine [Unknown]
  - Dysuria [Unknown]
  - Drug intolerance [Unknown]
  - Pain [Unknown]
  - Asthenia [Unknown]
  - Fatigue [Unknown]
  - Ageusia [Unknown]
  - Weight decreased [Unknown]
  - Dysphagia [Unknown]
  - Pyrexia [Unknown]
  - Bone pain [Unknown]
  - Headache [Unknown]
